FAERS Safety Report 14269204 (Version 1)
Quarter: 2017Q4

REPORT INFORMATION
  Report Type: Spontaneous
  Country: JP (occurrence: JP)
  Receive Date: 20171211
  Receipt Date: 20171211
  Transmission Date: 20180321
  Serious: Yes (Other)
  Sender: FDA-Public Use
  Company Number: JP-OTSUKA-007937

PATIENT
  Age: 32 Year
  Sex: Male

DRUGS (16)
  1. ABILIFY [Suspect]
     Active Substance: ARIPIPRAZOLE
     Indication: PSYCHOMOTOR HYPERACTIVITY
     Dosage: 6 MG, QD
     Route: 048
     Dates: start: 20091028, end: 20091029
  2. RIVOTRIL [Concomitant]
     Active Substance: CLONAZEPAM
     Indication: IRRITABILITY
     Route: 048
     Dates: end: 20091027
  3. PAXIL [Concomitant]
     Active Substance: PAROXETINE HYDROCHLORIDE
     Indication: COMPULSIONS
     Dosage: UNK, UNK
     Route: 048
     Dates: end: 20091027
  4. CLONAZEPAM. [Concomitant]
     Active Substance: CLONAZEPAM
     Dosage: .5 MG, UNK
  5. GLYCERIN. [Concomitant]
     Active Substance: GLYCERIN
     Indication: CONSTIPATION
     Dosage: 30 ML, QD
     Route: 054
     Dates: start: 20090407, end: 20090518
  6. PAXIL [Concomitant]
     Active Substance: PAROXETINE HYDROCHLORIDE
     Dosage: 10 MG, BID
     Route: 048
     Dates: start: 20091028
  7. LECICARBON [Concomitant]
     Active Substance: SODIUM BICARBONATE\SODIUM PHOSPHATE, MONOBASIC
     Dosage: UNK
     Dates: start: 20090407
  8. FLUNITRAZEPAM [Concomitant]
     Active Substance: FLUNITRAZEPAM
     Dosage: FORMULATION: TABLET
     Dates: start: 20071114
  9. QUETIAPINE. [Concomitant]
     Active Substance: QUETIAPINE
     Dosage: FORM: TABLET
  10. ROHYPNOL [Concomitant]
     Active Substance: FLUNITRAZEPAM
     Indication: INSOMNIA
     Dosage: 1 MG, QD
     Route: 048
     Dates: start: 20071114
  11. SEROQUEL [Concomitant]
     Active Substance: QUETIAPINE FUMARATE
     Dosage: 25 MG, TID
     Route: 048
     Dates: start: 20091028
  12. SEROQUEL [Concomitant]
     Active Substance: QUETIAPINE FUMARATE
     Indication: PSYCHOMOTOR HYPERACTIVITY
     Dosage: UNK, UNK
     Route: 048
     Dates: end: 20091027
  13. GLYCERIN. [Concomitant]
     Active Substance: GLYCERIN
     Dosage: 60 ML, QD
     Route: 054
     Dates: start: 20090519
  14. RIVOTRIL [Concomitant]
     Active Substance: CLONAZEPAM
     Dosage: 0.5 MG, QD
     Route: 048
     Dates: start: 20091028
  15. LECICARBON SUPPOSITORY [Concomitant]
     Indication: CONSTIPATION
     Dosage: 1 DF, QD
     Route: 054
     Dates: start: 20090407
  16. PAROXETINE. [Concomitant]
     Active Substance: PAROXETINE
     Dosage: FORM: TABLET

REACTIONS (1)
  - Hiccups [Recovered/Resolved]

NARRATIVE: CASE EVENT DATE: 20091028
